FAERS Safety Report 17261967 (Version 1)
Quarter: 2020Q1

REPORT INFORMATION
  Report Type: Spontaneous
  Country: CN (occurrence: CN)
  Receive Date: 20200113
  Receipt Date: 20200113
  Transmission Date: 20200409
  Serious: Yes (Other)
  Sender: FDA-Public Use
  Company Number: CN-PFIZER INC-2020011463

PATIENT
  Age: 77 Year
  Sex: Female
  Weight: 30 kg

DRUGS (2)
  1. LIPITOR [Suspect]
     Active Substance: ATORVASTATIN CALCIUM
     Indication: PLAQUE SHIFT
     Dosage: 20 MG, ONCE A DAY
     Route: 048
     Dates: start: 20191220, end: 20191226
  2. AVELOX [Suspect]
     Active Substance: MOXIFLOXACIN HYDROCHLORIDE
     Indication: PNEUMONIA
     Dosage: 0.4 G, ONCE A DAY
     Route: 040
     Dates: start: 20191220, end: 20200104

REACTIONS (2)
  - Hepatic function abnormal [Recovering/Resolving]
  - Pneumonia [Unknown]

NARRATIVE: CASE EVENT DATE: 20191226
